FAERS Safety Report 20667019 (Version 1)
Quarter: 2022Q2

REPORT INFORMATION
  Report Type: Spontaneous
  Country: FR (occurrence: FR)
  Receive Date: 20220404
  Receipt Date: 20220404
  Transmission Date: 20220721
  Serious: Yes (Life-Threatening, Other)
  Sender: FDA-Public Use
  Company Number: FR-AFSSAPS-AM20220695

PATIENT
  Age: 69 Year
  Sex: Male
  Weight: 90 kg

DRUGS (17)
  1. ALLOPURINOL [Suspect]
     Active Substance: ALLOPURINOL
     Indication: Product used for unknown indication
     Dosage: 800 MILLIGRAM, 1 TOTAL
     Route: 048
     Dates: start: 20220127, end: 20220127
  2. ATORVASTATIN [Suspect]
     Active Substance: ATORVASTATIN
     Indication: Dyslipidaemia
     Dosage: 80 MILLIGRAM, 1 TOTAL
     Route: 048
     Dates: start: 20220127, end: 20220127
  3. FUROSEMIDE [Suspect]
     Active Substance: FUROSEMIDE
     Indication: Cardiac failure
     Dosage: 160 MILLIGRAM, 1 TOTAL
     Route: 048
     Dates: start: 20220127, end: 20220127
  4. LORMETAZEPAM [Suspect]
     Active Substance: LORMETAZEPAM
     Indication: Anxiety
     Dosage: 4 MILLIGRAM, 1 TOTAL
     Route: 048
     Dates: start: 20220127, end: 20220127
  5. METFORMIN [Suspect]
     Active Substance: METFORMIN HYDROCHLORIDE
     Indication: Type 2 diabetes mellitus
     Dosage: 8 GRAM
     Route: 048
     Dates: start: 20220127, end: 20220127
  6. TRAMADOL [Suspect]
     Active Substance: TRAMADOL
     Indication: Pain
     Dosage: 400 MILLIGRAM, 1 TOTAL
     Route: 048
     Dates: start: 20220127, end: 20220127
  7. TAMSULOSIN [Suspect]
     Active Substance: TAMSULOSIN
     Indication: Benign prostatic hyperplasia
     Dosage: 1.6 MILLIGRAM, 1 TOTAL
     Route: 048
     Dates: start: 20220127, end: 20220127
  8. ZOPICLONE [Suspect]
     Active Substance: ZOPICLONE
     Indication: Insomnia
     Dosage: 15 MILLIGRAM, 1 TOTAL
     Route: 048
     Dates: start: 20220127, end: 20220127
  9. CYAMEMAZINE [Suspect]
     Active Substance: CYAMEMAZINE
     Indication: Bipolar disorder
     Dosage: 200 MILLIGRAM, 1 TOTAL
     Route: 048
     Dates: start: 20220127, end: 20220127
  10. NEURONTIN [Suspect]
     Active Substance: GABAPENTIN
     Indication: Neuralgia
     Dosage: 3600 MILLIGRAM, 1 TOTAL
     Route: 048
     Dates: start: 20220127, end: 20220127
  11. LAMICTAL [Suspect]
     Active Substance: LAMOTRIGINE
     Indication: Bipolar disorder
     Dosage: 1000 MILLIGRAM, 1 TOTAL
     Route: 048
     Dates: start: 20220127, end: 20220127
  12. MESTINON [Suspect]
     Active Substance: PYRIDOSTIGMINE BROMIDE
     Indication: Parkinsonism
     Dosage: 480 MILLIGRAM, 1 TOTAL
     Route: 048
     Dates: start: 20220127, end: 20220127
  13. TRILEPTAL [Suspect]
     Active Substance: OXCARBAZEPINE
     Indication: Bipolar disorder
     Dosage: 2400 MILLIGRAM, 1 TOTAL
     Route: 048
     Dates: start: 20220127, end: 20220127
  14. QUETIAPINE FUMARATE [Suspect]
     Active Substance: QUETIAPINE FUMARATE
     Indication: Bipolar disorder
     Dosage: 400 MILLIGRAM, 1 TOTAL
     Route: 048
     Dates: start: 20220127, end: 20220127
  15. XARELTO [Suspect]
     Active Substance: RIVAROXABAN
     Indication: Atrial fibrillation
     Dosage: 60 MILLIGRAM, 1 TOTAL
     Route: 048
     Dates: start: 20220127, end: 20220127
  16. ACETAMINOPHEN [Concomitant]
     Active Substance: ACETAMINOPHEN
     Indication: Product used for unknown indication
     Dosage: UNK
     Route: 065
  17. CHOLECALCIFEROL [Concomitant]
     Active Substance: CHOLECALCIFEROL
     Indication: Product used for unknown indication
     Dosage: UNK
     Route: 065

REACTIONS (4)
  - Coma [Recovered/Resolved]
  - Acute kidney injury [Recovered/Resolved]
  - Lactic acidosis [Recovered/Resolved]
  - Poisoning deliberate [Recovered/Resolved]

NARRATIVE: CASE EVENT DATE: 20220127
